FAERS Safety Report 8720617 (Version 2)
Quarter: 2015Q2

REPORT INFORMATION
  Report Type: Report from Study
  Country: US (occurrence: US)
  Receive Date: 20120813
  Receipt Date: 20150402
  Transmission Date: 20150821
  Serious: Yes (Hospitalization)
  Sender: FDA-Public Use
  Company Number: US-ROCHE-1099312

PATIENT
  Sex: Male

DRUGS (7)
  1. ACTIVASE [Suspect]
     Active Substance: ALTEPLASE
     Dosage: 40 MG IN 90 ML DISTILLED WATER
     Route: 042
  2. ACTIVASE [Suspect]
     Active Substance: ALTEPLASE
     Route: 042
  3. XYLOCAINE [Concomitant]
     Active Substance: LIDOCAINE HYDROCHLORIDE
     Route: 040
  4. XYLOCAINE [Concomitant]
     Active Substance: LIDOCAINE HYDROCHLORIDE
     Route: 041
  5. ACTIVASE [Suspect]
     Active Substance: ALTEPLASE
     Indication: ACUTE MYOCARDIAL INFARCTION
     Route: 040
  6. MORPHINE SULFATE. [Concomitant]
     Active Substance: MORPHINE SULFATE
     Route: 042
  7. MORPHINE SULFATE. [Concomitant]
     Active Substance: MORPHINE SULFATE
     Route: 042

REACTIONS (4)
  - Chest pain [Recovering/Resolving]
  - Loss of consciousness [Unknown]
  - Ventricular fibrillation [Unknown]
  - Ventricular extrasystoles [Recovered/Resolved]
